FAERS Safety Report 15228014 (Version 1)
Quarter: 2018Q3

REPORT INFORMATION
  Report Type: Spontaneous
  Country: US (occurrence: US)
  Receive Date: 20180706
  Receipt Date: 20180706
  Transmission Date: 20181010
  Serious: Yes (Other)
  Sender: FDA-Public Use
  Company Number: None

PATIENT
  Age: 21 Year
  Sex: Female
  Weight: 103.5 kg

DRUGS (1)
  1. NEUTROGENA ULTRA SHEER BODY MIST SUNSCREEN BROAD SPECTRUM SPF 45 [Suspect]
     Active Substance: AVOBENZONE\HOMOSALATE\OCTISALATE\OCTOCRYLENE\OXYBENZONE
     Indication: PROPHYLAXIS
     Route: 061

REACTIONS (4)
  - Drug ineffective [None]
  - Sunburn [None]
  - Blister [None]
  - Blood blister [None]

NARRATIVE: CASE EVENT DATE: 20180705
